FAERS Safety Report 4981738-4 (Version None)
Quarter: 2006Q2

REPORT INFORMATION
  Report Type: 
  Country: None (occurrence: None)
  Receive Date: 20060425
  Receipt Date: 20060110
  Transmission Date: 20061013
  Serious: Yes (Hospitalization)
  Sender: FDA-Public Use
  Company Number: PHBS2006JP00807

PATIENT
  Age: 59 Year
  Sex: Female
  Weight: 49 kg

DRUGS (9)
  1. ADONA [Concomitant]
     Dosage: 90 MG/D
     Route: 048
     Dates: start: 20050401
  2. MARZULENE S [Concomitant]
     Dosage: 2 G/D
     Route: 048
     Dates: start: 20050401
  3. ZYLORIC [Concomitant]
     Dosage: 200 MG/D
     Route: 048
     Dates: start: 20050401
  4. ALFAROL [Concomitant]
     Dosage: 1 UG/D
     Route: 048
     Dates: start: 20050401
  5. NEORAL [Suspect]
     Indication: APLASTIC ANAEMIA
     Dosage: 150 MG/D
     Route: 048
     Dates: start: 20060125
  6. NEORAL [Suspect]
     Dosage: 100 MG/D
     Route: 048
  7. NEORAL [Suspect]
     Dosage: 50 MG/D
     Route: 048
  8. NEORAL [Suspect]
     Dosage: 200 MG/D
     Route: 048
     Dates: start: 20050401, end: 20050124
  9. NORVASC [Concomitant]
     Dosage: 5 MG/D
     Route: 048
     Dates: start: 20050401

REACTIONS (2)
  - DYSPNOEA [None]
  - PLEURAL EFFUSION [None]
